FAERS Safety Report 10700894 (Version 1)
Quarter: 2014Q4

REPORT INFORMATION
  Report Type: Spontaneous
  Country: US (occurrence: None)
  Receive Date: 20141224
  Receipt Date: 20141224
  Transmission Date: 20150529
  Serious: Yes (Other)
  Sender: FDA-Public Use
  Company Number: PHEH2014US003003

PATIENT
  Sex: Male

DRUGS (1)
  1. EXJADE [Suspect]
     Active Substance: DEFERASIROX
     Indication: IRON OVERLOAD
     Route: 048
     Dates: start: 20140205, end: 20140205

REACTIONS (4)
  - Oropharyngeal pain [None]
  - Vomiting [None]
  - Periorbital oedema [None]
  - Facial pain [None]

NARRATIVE: CASE EVENT DATE: 20140205
